FAERS Safety Report 17968041 (Version 1)
Quarter: 2020Q3

REPORT INFORMATION
  Report Type: Spontaneous
  Country: US (occurrence: US)
  Receive Date: 20200701
  Receipt Date: 20200701
  Transmission Date: 20201103
  Serious: Yes (Other)
  Sender: FDA-Public Use
  Company Number: US-PFIZER INC-2018470756

PATIENT
  Age: 51 Year
  Sex: Female

DRUGS (11)
  1. HYDROXIZINE HCL [Concomitant]
     Dosage: 50 MG, AS NEEDED [EVERY 6 HRS]
     Route: 048
  2. LYRICA [Suspect]
     Active Substance: PREGABALIN
     Indication: DEPRESSION
  3. DULOXETINE HCL [Concomitant]
     Active Substance: DULOXETINE HYDROCHLORIDE
     Dosage: 60 MG, 1X/DAY
     Route: 048
  4. LYRICA [Suspect]
     Active Substance: PREGABALIN
     Indication: BIPOLAR DISORDER
     Dosage: 75 MG, 2X/DAY
     Route: 048
  5. OLANZAPINE. [Concomitant]
     Active Substance: OLANZAPINE
     Dosage: 2.5 MG, 1X/DAY
     Route: 048
  6. LITHIUM CARBONATE. [Concomitant]
     Active Substance: LITHIUM CARBONATE
     Dosage: 450 MG, 1X/DAY [AT BEDTIME]
     Route: 048
  7. LYRICA [Suspect]
     Active Substance: PREGABALIN
     Indication: SPINAL OSTEOARTHRITIS
  8. LIPITOR [Concomitant]
     Active Substance: ATORVASTATIN CALCIUM
     Dosage: 20 MG, 1X/DAY
     Route: 048
  9. VITAMIN B12 [Concomitant]
     Active Substance: CYANOCOBALAMIN
     Dosage: 1000 UG, 1X/DAY
     Route: 060
  10. BACLOFEN. [Concomitant]
     Active Substance: BACLOFEN
     Dosage: 10 MG, 3X/DAY [WITH FOOD OR MILK ]
     Route: 048
  11. MIRTAZAPINE. [Concomitant]
     Active Substance: MIRTAZAPINE
     Dosage: 30 MG, 1X/DAY [AT BEDTIME]
     Route: 048

REACTIONS (2)
  - Amnesia [Unknown]
  - Schizophrenia [Unknown]
